FAERS Safety Report 10005655 (Version 1)
Quarter: 2014Q1

REPORT INFORMATION
  Report Type: Spontaneous
  Country: US (occurrence: US)
  Receive Date: 20140313
  Receipt Date: 20140313
  Transmission Date: 20141002
  Serious: No
  Sender: FDA-Public Use
  Company Number: US-BIOGENIDEC-2014BI021179

PATIENT
  Age: 53 Year
  Sex: Female

DRUGS (5)
  1. TECFIDERA [Suspect]
     Indication: MULTIPLE SCLEROSIS
     Route: 048
  2. BACLOFEN [Concomitant]
  3. CLONAZEPAM [Concomitant]
  4. OXYCODONE HCI [Concomitant]
  5. ZOFRAN [Concomitant]

REACTIONS (2)
  - Asthenia [Unknown]
  - Rash papular [Unknown]
